FAERS Safety Report 8514530-4 (Version None)
Quarter: 2012Q3

REPORT INFORMATION
  Report Type: 
  Country: None (occurrence: None)
  Receive Date: 20120717
  Receipt Date: 20120706
  Transmission Date: 20120928
  Serious: Yes (Hospitalization)
  Sender: FDA-Public Use
  Company Number: FR-BAYER-2012-067697

PATIENT
  Age: 61 Year
  Sex: Male

DRUGS (2)
  1. PLACEBO [Suspect]
     Indication: HEPATIC NEOPLASM MALIGNANT
     Dosage: UNK
     Route: 048
     Dates: start: 20090812, end: 20091005
  2. SORAFENIB (RAF KINASE INHIBITOR) [Suspect]
     Dosage: 800 MG, QD
     Route: 048
     Dates: start: 20090812, end: 20091005

REACTIONS (2)
  - SKIN NECROSIS [None]
  - OSTEITIS [None]
